FAERS Safety Report 22852515 (Version 2)
Quarter: 2023Q4

REPORT INFORMATION
  Report Type: Spontaneous
  Country: BR (occurrence: BR)
  Receive Date: 20230823
  Receipt Date: 20231010
  Transmission Date: 20240110
  Serious: Yes (Hospitalization, Other)
  Sender: FDA-Public Use
  Company Number: BR-NOVOPROD-1103000

PATIENT
  Age: 134 Month
  Sex: Female

DRUGS (2)
  1. FIASP [Suspect]
     Active Substance: INSULIN ASPART
     Indication: Type 1 diabetes mellitus
     Dosage: 1 TO 4 IU BASED ON GLYCAEMIC LEVEL (4 TIMES A DAY)
     Dates: start: 20230805, end: 20230810
  2. FIASP [Suspect]
     Active Substance: INSULIN ASPART
     Indication: Type 1 diabetes mellitus
     Dosage: 1 TO 4 IU BASED ON GLYCAEMIC LEVEL (4 TIMES A DAY)
     Dates: start: 20230727, end: 20230804

REACTIONS (6)
  - Hypoglycaemic unconsciousness [Not Recovered/Not Resolved]
  - Device issue [Unknown]
  - Device leakage [Unknown]
  - Device delivery system issue [Unknown]
  - Hypoglycaemia [Unknown]
  - Product storage error [Unknown]

NARRATIVE: CASE EVENT DATE: 20230701
